FAERS Safety Report 23178409 (Version 2)
Quarter: 2025Q2

REPORT INFORMATION
  Report Type: Report from Study
  Country: CN (occurrence: CN)
  Receive Date: 20231113
  Receipt Date: 20250530
  Transmission Date: 20250717
  Serious: Yes (Hospitalization)
  Sender: EISAI
  Company Number: CN-Eisai Medical Research-EC-2023-145089

PATIENT
  Age: 60 Year
  Sex: Male
  Weight: 56 kg

DRUGS (12)
  1. LENVATINIB [Suspect]
     Active Substance: LENVATINIB
     Indication: Hepatocellular carcinoma
     Dates: start: 20230301, end: 20240425
  2. DURVALUMAB [Suspect]
     Active Substance: DURVALUMAB
     Indication: Hepatocellular carcinoma
     Dates: start: 20230301, end: 20240328
  3. TREMELIMUMAB [Suspect]
     Active Substance: TREMELIMUMAB
     Indication: Hepatocellular carcinoma
     Dates: start: 20230301, end: 20230301
  4. ENTECAVIR [Concomitant]
     Active Substance: ENTECAVIR
     Indication: Chronic hepatitis B
     Dates: start: 20230209
  5. ATORVASTATIN CALCIUM [Concomitant]
     Active Substance: ATORVASTATIN CALCIUM
     Indication: Blood triglycerides increased
     Dates: start: 20230216
  6. HALOMETASONE [Concomitant]
     Active Substance: HALOMETASONE
     Indication: Eczema
     Dates: start: 20230410
  7. LORATADINE [Concomitant]
     Active Substance: LORATADINE
     Indication: Eczema
     Dates: start: 20230410
  8. COMPOUND GLYCYRRHIZIN [Concomitant]
     Indication: Antiviral prophylaxis
     Dates: start: 20230410
  9. LEVOCETIRIZINE DIHYDROCHLORIDE [Concomitant]
     Active Substance: LEVOCETIRIZINE DIHYDROCHLORIDE
     Indication: Eczema
     Dates: start: 20230410
  10. KETOTIFEN FUMARATE [Concomitant]
     Active Substance: KETOTIFEN FUMARATE
     Indication: Hypersensitivity
     Dates: start: 20230410
  11. CALCIUM GLUCONATE [Concomitant]
     Active Substance: CALCIUM GLUCONATE
     Indication: Hypersensitivity
     Dates: start: 20230326, end: 20230504
  12. VITAMIN C [Concomitant]
     Active Substance: ASCORBIC ACID
     Indication: Supportive care
     Dates: start: 20230410, end: 20230504

REACTIONS (1)
  - Eczema [Recovered/Resolved]

NARRATIVE: CASE EVENT DATE: 20230324
